FAERS Safety Report 5871997-8 (Version None)
Quarter: 2008Q3

REPORT INFORMATION
  Report Type: 
  Country: None (occurrence: None)
  Receive Date: 20080904
  Receipt Date: 20080904
  Transmission Date: 20090109
  Serious: Yes (Other)
  Sender: FDA-Public Use
  Company Number: None

PATIENT
  Age: 56 Year
  Sex: Male
  Weight: 81.6475 kg

DRUGS (4)
  1. CYMBALTA [Suspect]
     Indication: DEPRESSION
     Dosage: 30 MG 1ST WEEK DAILY PO, 60 MG AFTER 1ST WEEK DAILY PO
     Route: 048
     Dates: start: 20080615, end: 20080621
  2. CYMBALTA [Suspect]
     Indication: FIBROMYALGIA
     Dosage: 30 MG 1ST WEEK DAILY PO, 60 MG AFTER 1ST WEEK DAILY PO
     Route: 048
     Dates: start: 20080615, end: 20080621
  3. CYMBALTA [Suspect]
     Indication: DEPRESSION
     Dosage: 30 MG 1ST WEEK DAILY PO, 60 MG AFTER 1ST WEEK DAILY PO
     Route: 048
     Dates: start: 20080622, end: 20080714
  4. CYMBALTA [Suspect]
     Indication: FIBROMYALGIA
     Dosage: 30 MG 1ST WEEK DAILY PO, 60 MG AFTER 1ST WEEK DAILY PO
     Route: 048
     Dates: start: 20080622, end: 20080714

REACTIONS (3)
  - URINARY HESITATION [None]
  - URINARY RETENTION [None]
  - URINE FLOW DECREASED [None]
